FAERS Safety Report 4490120-8 (Version None)
Quarter: 2004Q4

REPORT INFORMATION
  Report Type: 
  Country: None (occurrence: None)
  Receive Date: 20041028
  Receipt Date: 20041020
  Transmission Date: 20050328
  Serious: Yes (Life-Threatening, Hospitalization, Disabling, Other)
  Sender: FDA-Public Use
  Company Number: 2004240269US

PATIENT
  Sex: Male
  Weight: 86.2 kg

DRUGS (9)
  1. CELEBREX [Suspect]
     Indication: PAIN
     Dosage: SEE IMAGE
     Route: 048
     Dates: start: 19980101
  2. LIPITOR [Suspect]
     Indication: HYPERCHOLESTEROLAEMIA
     Dosage: 10 MG, QD, ORAL
     Route: 048
     Dates: start: 20020101
  3. TAGAMET [Concomitant]
  4. VASERETIC [Concomitant]
  5. ACETYLSALICYLIC ACID [Concomitant]
  6. MULTIVITAMINS (ERGOCALCIFEROL, RETINOL, PANTHENOL) [Concomitant]
  7. COENZYME Q10 [Concomitant]
  8. LORTAB [Concomitant]
  9. FIORICET [Concomitant]

REACTIONS (14)
  - BLOOD CHOLESTEROL INCREASED [None]
  - CEREBROVASCULAR ACCIDENT [None]
  - HEAT STROKE [None]
  - IMPAIRED HEALING [None]
  - MEDICAL DEVICE COMPLICATION [None]
  - MOTION SICKNESS [None]
  - NERVE COMPRESSION [None]
  - POST PROCEDURAL COMPLICATION [None]
  - POST PROCEDURAL HAEMORRHAGE [None]
  - PROCEDURAL COMPLICATION [None]
  - PYREXIA [None]
  - REFLUX GASTRITIS [None]
  - SURGICAL PROCEDURE REPEATED [None]
  - UNEXPECTED THERAPEUTIC DRUG EFFECT [None]
